FAERS Safety Report 12427729 (Version 1)
Quarter: 2016Q2

REPORT INFORMATION
  Report Type: Spontaneous
  Country: US (occurrence: None)
  Receive Date: 20160531
  Receipt Date: 20160531
  Transmission Date: 20160815
  Serious: No
  Sender: FDA-Public Use
  Company Number: None

PATIENT
  Age: 64 Year
  Sex: Male

DRUGS (1)
  1. ENBREL [Suspect]
     Active Substance: ETANERCEPT
     Indication: RHEUMATOID ARTHRITIS
     Route: 058
     Dates: start: 20140801

REACTIONS (4)
  - Psoriasis [None]
  - Musculoskeletal stiffness [None]
  - Rash [None]
  - Rheumatoid arthritis [None]

NARRATIVE: CASE EVENT DATE: 20160526
